FAERS Safety Report 6786091-1 (Version None)
Quarter: 2010Q2

REPORT INFORMATION
  Report Type: 
  Country: None (occurrence: None)
  Receive Date: 20100623
  Receipt Date: 20100615
  Transmission Date: 20101027
  Serious: Yes (Hospitalization)
  Sender: FDA-Public Use
  Company Number: PHHY2009FR16690

PATIENT
  Sex: Female
  Weight: 46 kg

DRUGS (3)
  1. EXELON [Suspect]
     Indication: DEMENTIA ALZHEIMER'S TYPE
     Dosage: 4.6 MG DAILY
     Route: 062
     Dates: start: 20090422, end: 20090423
  2. COVERSYL [Concomitant]
     Dosage: 8 MG PER DAY
  3. FLODIL LP [Concomitant]
     Dosage: 5 MG PER DAY

REACTIONS (6)
  - ASTHENIA [None]
  - HYPERSENSITIVITY [None]
  - INFLUENZA [None]
  - MUSCULOSKELETAL STIFFNESS [None]
  - NAUSEA [None]
  - VOMITING [None]
